FAERS Safety Report 8852899 (Version 1)
Quarter: 2012Q4

REPORT INFORMATION
  Report Type: 
  Country: BR (occurrence: BR)
  Receive Date: 20121022
  Receipt Date: 20121022
  Transmission Date: 20130627
  Serious: Yes (Other)
  Sender: FDA-Public Use
  Company Number: BR-MERCK-1208BRA012566

PATIENT
  Sex: Male
  Weight: 65 kg

DRUGS (5)
  1. PEG-INTRON [Suspect]
     Indication: HEPATITIS C
     Dosage: 80 Microgram, qw
     Route: 051
     Dates: start: 20120229, end: 20121015
  2. RIBAVIRIN [Suspect]
     Indication: HEPATITIS C
     Dosage: 1000 mg, UNK
     Route: 048
     Dates: start: 20120229
  3. RIBAVIRIN [Suspect]
     Dosage: UNK
     Route: 048
     Dates: end: 20121015
  4. VICTRELIS [Suspect]
     Indication: HEPATITIS C
     Dosage: 800 mg, q8h
     Route: 048
     Dates: start: 20120404, end: 20121015
  5. OMEPRAZOLE [Concomitant]
     Indication: PROPHYLAXIS AGAINST GASTROINTESTINAL ULCER

REACTIONS (12)
  - Hearing impaired [Not Recovered/Not Resolved]
  - Pruritus [Not Recovered/Not Resolved]
  - Renal cyst [Not Recovered/Not Resolved]
  - Myalgia [Not Recovered/Not Resolved]
  - Haemolytic anaemia [Not Recovered/Not Resolved]
  - Serum ferritin increased [Unknown]
  - Weight decreased [Not Recovered/Not Resolved]
  - Injection site mass [Not Recovered/Not Resolved]
  - Drug ineffective [Unknown]
  - Thyroid function test abnormal [Not Recovered/Not Resolved]
  - Eyelid infection [Not Recovered/Not Resolved]
  - Muscle fatigue [Not Recovered/Not Resolved]
